FAERS Safety Report 4487945-1 (Version None)
Quarter: 2004Q4

REPORT INFORMATION
  Report Type: 
  Country: None (occurrence: None)
  Receive Date: 20041026
  Receipt Date: 20041007
  Transmission Date: 20050328
  Serious: Yes (Other)
  Sender: FDA-Public Use
  Company Number: USA041080530

PATIENT
  Age: 77 Year
  Sex: Female

DRUGS (4)
  1. EVISTA [Suspect]
     Indication: OSTEOPOROSIS
     Dates: end: 20040201
  2. LORAZEPAM [Concomitant]
  3. LIPITOR [Concomitant]
  4. ATENOLOL [Concomitant]

REACTIONS (1)
  - BREAST CANCER FEMALE [None]
